FAERS Safety Report 11330816 (Version 1)
Quarter: 2015Q3

REPORT INFORMATION
  Report Type: Spontaneous
  Country: US (occurrence: None)
  Receive Date: 20150730
  Receipt Date: 20150730
  Transmission Date: 20151125
  Serious: Yes (Other)
  Sender: FDA-Public Use
  Company Number: None

PATIENT
  Age: 61 Year
  Sex: Female
  Weight: 45.36 kg

DRUGS (2)
  1. ATENOLOL. [Suspect]
     Active Substance: ATENOLOL
     Indication: ARRHYTHMIA
     Route: 048
  2. TENORMIN [Concomitant]
     Active Substance: ATENOLOL

REACTIONS (8)
  - Balance disorder [None]
  - Vision blurred [None]
  - Hyperhidrosis [None]
  - Condition aggravated [None]
  - Dizziness [None]
  - Product substitution issue [None]
  - Arrhythmia [None]
  - Palpitations [None]
